FAERS Safety Report 17802593 (Version 1)
Quarter: 2020Q2

REPORT INFORMATION
  Report Type: Spontaneous
  Country: IN (occurrence: IN)
  Receive Date: 20200519
  Receipt Date: 20200519
  Transmission Date: 20200714
  Serious: Yes (Hospitalization, Other)
  Sender: FDA-Public Use
  Company Number: IN-UNICHEM PHARMACEUTICALS (USA) INC-UCM202005-000598

PATIENT
  Age: 16 Year
  Sex: Female
  Weight: 35 kg

DRUGS (3)
  1. TOPIRAMATE. [Suspect]
     Active Substance: TOPIRAMATE
     Indication: FOCAL DYSCOGNITIVE SEIZURES
     Dosage: 4-2-4
  2. TOPIRAMATE. [Suspect]
     Active Substance: TOPIRAMATE
  3. ESCITALOPRAM [Concomitant]
     Active Substance: ESCITALOPRAM OXALATE
     Indication: ANOREXIA NERVOSA

REACTIONS (3)
  - Drug abuse [Unknown]
  - Intentional overdose [Unknown]
  - Weight decreased [Recovering/Resolving]
